FAERS Safety Report 7403200-1 (Version None)
Quarter: 2011Q1

REPORT INFORMATION
  Report Type: 
  Country: None (occurrence: None)
  Receive Date: 20110301
  Receipt Date: 20100907
  Transmission Date: 20110831
  Serious: Yes (Other)
  Sender: FDA-Public Use
  Company Number: US-JNJFOC-20100503682

PATIENT
  Age: 4 Year
  Sex: Male
  Weight: 17.2367 kg

DRUGS (8)
  1. BENADRYL [Suspect]
     Indication: RASH
     Dosage: 5 ML, 3 IN 1 DAY, ORAL
     Route: 048
     Dates: start: 20100416, end: 20100418
  2. CHILDREN'S MOTRIN [Suspect]
     Indication: ABDOMINAL PAIN UPPER
     Dosage: 7.5 ML, 2 IN 1 DAY, ORAL
     Route: 048
     Dates: start: 20100414, end: 20100417
  3. CHILDREN'S MOTRIN [Suspect]
     Indication: OROPHARYNGEAL PAIN
     Dosage: 7.5 ML, 2 IN 1 DAY, ORAL
     Route: 048
     Dates: start: 20100414, end: 20100417
  4. CEFTRIAXONE [Suspect]
     Indication: ILL-DEFINED DISORDER
  5. CHILDREN'S TYLENOL SUSPENSION [Suspect]
     Indication: OROPHARYNGEAL PAIN
     Dates: start: 20100417, end: 20100417
  6. CHILDREN'S TYLENOL SUSPENSION [Suspect]
     Indication: ABDOMINAL PAIN UPPER
     Dates: start: 20100417, end: 20100417
  7. CHILDREN'S TYLENOL SUSPENSION [Suspect]
     Indication: URTICARIA
     Dates: start: 20100417, end: 20100417
  8. AZITHROMYCIN [Suspect]
     Indication: ILL-DEFINED DISORDER

REACTIONS (3)
  - CONDITION AGGRAVATED [None]
  - HYPERSENSITIVITY [None]
  - PRODUCT QUALITY ISSUE [None]
